FAERS Safety Report 4712355-9 (Version None)
Quarter: 2005Q3

REPORT INFORMATION
  Report Type: 
  Country: None (occurrence: None)
  Receive Date: 20050711
  Receipt Date: 20050627
  Transmission Date: 20060218
  Serious: Yes (Disabling, Other)
  Sender: FDA-Public Use
  Company Number: 2005090683

PATIENT
  Age: 55 Year
  Sex: Male
  Weight: 95 kg

DRUGS (4)
  1. ZOLOFT [Suspect]
     Indication: DEPRESSION
     Dosage: 200 MG (100 MG, 2 IN 1 D), ORAL
     Route: 048
     Dates: start: 20040601, end: 20050601
  2. EFFEXOR [Suspect]
     Indication: DEPRESSION
     Dosage: 150 MG (150 MG, DAILY), ORAL
     Route: 048
     Dates: start: 20030901, end: 20040601
  3. BENZODIAZEPINE DERIVATIVES (BENZODIAZEPINE DERIVATIVES) [Concomitant]
  4. ZOPICLONE (ZOPICLONE) [Concomitant]

REACTIONS (6)
  - ANTIDEPRESSANT DRUG LEVEL DECREASED [None]
  - DRUG INEFFECTIVE [None]
  - INTRAOCULAR PRESSURE DECREASED [None]
  - OPTIC ATROPHY [None]
  - VISUAL EVOKED POTENTIALS ABNORMAL [None]
  - VISUAL PATHWAY DISORDER [None]
